FAERS Safety Report 8302343 (Version 4)
Quarter: 2013Q2

REPORT INFORMATION
  Report Type: Spontaneous
  Country: US (occurrence: US)
  Receive Date: 20111220
  Receipt Date: 20130405
  Transmission Date: 20140414
  Serious: Yes (Death, Hospitalization)
  Sender: FDA-Public Use
  Company Number: US-BAYER-2011-118621

PATIENT
  Age: 23 Year
  Sex: Female
  Weight: 56.69 kg

DRUGS (8)
  1. YASMIN [Suspect]
     Indication: MENORRHAGIA
     Dosage: UNK
     Dates: start: 200504, end: 20061120
  2. YASMIN [Suspect]
     Indication: PREMENSTRUAL SYNDROME
  3. ZOLOFT [Concomitant]
     Dosage: 50 MG, UNK
  4. SULFAMETHOXAZOLE [Concomitant]
  5. PHENAZOPYRIDINE [Concomitant]
  6. SERTRALINE HYDROCHLORIDE [Concomitant]
     Dosage: 50 MG, UNK
  7. VITAMIN C [ASCORBIC ACID] [Concomitant]
  8. UNASYN [Concomitant]

REACTIONS (10)
  - Cerebral haemorrhage [Fatal]
  - Intracranial venous sinus thrombosis [Fatal]
  - Cerebral infarction [Fatal]
  - Brain herniation [Fatal]
  - Haemorrhagic anaemia [Fatal]
  - Deep vein thrombosis [None]
  - Headache [Fatal]
  - Nausea [Fatal]
  - Vomiting [Fatal]
  - Circulatory collapse [Fatal]
